FAERS Safety Report 10216795 (Version 1)
Quarter: 2014Q2

REPORT INFORMATION
  Report Type: Spontaneous
  Country: US (occurrence: US)
  Receive Date: 20140604
  Receipt Date: 20140604
  Transmission Date: 20141212
  Serious: Yes (Hospitalization, Other)
  Sender: FDA-Public Use
  Company Number: US-TEVA-485598USA

PATIENT
  Age: 44 Year
  Sex: Female

DRUGS (1)
  1. NUVIGIL [Suspect]

REACTIONS (5)
  - Gallbladder operation [Unknown]
  - Biliary tract disorder [Not Recovered/Not Resolved]
  - Surgery [Unknown]
  - Fall [Unknown]
  - Ankle fracture [Unknown]
